FAERS Safety Report 10789862 (Version 1)
Quarter: 2015Q1

REPORT INFORMATION
  Report Type: Spontaneous
  Country: US (occurrence: US)
  Receive Date: 20150212
  Receipt Date: 20150212
  Transmission Date: 20150721
  Serious: No
  Sender: FDA-Public Use
  Company Number: US-009507513-1502USA003392

PATIENT
  Sex: Female

DRUGS (3)
  1. FOLLISTIM [Suspect]
     Active Substance: FOLLITROPIN
     Indication: ASSISTED FERTILISATION
     Dosage: 200 IU, QD, STRENGTH 600 UNT/ 0.72 ML 1CARTRIDGE, INVITRO
     Dates: start: 20150131, end: 20150201
  2. FOLLISTIM [Suspect]
     Active Substance: FOLLITROPIN
     Dosage: 200 IU, QD, STRENGTH 600 UNT/ 0.72 ML 1CARTRIDGE, INVITRO
     Dates: start: 20150204, end: 20150205
  3. FOLLISTIM [Suspect]
     Active Substance: FOLLITROPIN
     Dosage: 250 IU, QD, STRENGTH 600 UNT/ 0.72 ML 1CARTRIDGE, INVITRO
     Dates: start: 20150202, end: 20150203

REACTIONS (1)
  - Drug ineffective [Not Recovered/Not Resolved]

NARRATIVE: CASE EVENT DATE: 20150131
